FAERS Safety Report 7685888-3 (Version None)
Quarter: 2011Q3

REPORT INFORMATION
  Report Type: 
  Country: None (occurrence: None)
  Receive Date: 20110816
  Receipt Date: 20110808
  Transmission Date: 20111222
  Serious: Yes (Hospitalization, Other)
  Sender: FDA-Public Use
  Company Number: US-CEPHALON-US018509

PATIENT
  Sex: Female
  Weight: 64 kg

DRUGS (3)
  1. ATENOLOL [Concomitant]
     Indication: BLOOD PRESSURE ABNORMAL
     Route: 048
  2. PROVIGIL [Suspect]
     Indication: SLEEP DISORDER
     Route: 048
     Dates: start: 20060801, end: 20060831
  3. NORVASC [Concomitant]
     Indication: BLOOD PRESSURE ABNORMAL
     Route: 048

REACTIONS (10)
  - PSYCHOTIC DISORDER [None]
  - HEART RATE INCREASED [None]
  - FATIGUE [None]
  - PETIT MAL EPILEPSY [None]
  - DIARRHOEA [None]
  - CHEST PAIN [None]
  - BLOOD POTASSIUM DECREASED [None]
  - WEIGHT DECREASED [None]
  - HYPOAESTHESIA [None]
  - SOMNOLENCE [None]
